FAERS Safety Report 19529007 (Version 1)
Quarter: 2021Q3

REPORT INFORMATION
  Report Type: Spontaneous
  Country: US (occurrence: US)
  Receive Date: 20210713
  Receipt Date: 20210713
  Transmission Date: 20211014
  Serious: No
  Sender: FDA-Public Use
  Company Number: US-MYOVANT SCIENCES GMBH-2021MYSCI0600068

PATIENT
  Age: 65 Year
  Sex: Male
  Weight: 101.88 kg

DRUGS (2)
  1. ORGOVYX [Suspect]
     Active Substance: RELUGOLIX
     Indication: PROSTATE CANCER
     Dosage: 360 MILLIGRAM, ONE TIME DOSE
     Route: 048
     Dates: start: 20210508, end: 20210508
  2. ORGOVYX [Suspect]
     Active Substance: RELUGOLIX
     Dosage: 120 MILLIGRAM, QD
     Route: 048
     Dates: start: 20210509

REACTIONS (3)
  - Somnolence [Unknown]
  - Libido decreased [Unknown]
  - Fatigue [Unknown]

NARRATIVE: CASE EVENT DATE: 202105
